FAERS Safety Report 10265928 (Version 1)
Quarter: 2014Q2

REPORT INFORMATION
  Report Type: Spontaneous
  Country: US (occurrence: US)
  Receive Date: 20140627
  Receipt Date: 20140627
  Transmission Date: 20141212
  Serious: Yes (Death, Other)
  Sender: FDA-Public Use
  Company Number: US-PFIZER INC-2014175832

PATIENT
  Age: 73 Year
  Sex: Female

DRUGS (2)
  1. PREMARIN [Suspect]
     Dosage: UNK
     Route: 048
  2. TESTOSTERONE [Concomitant]

REACTIONS (4)
  - Breast cancer female [Recovered/Resolved]
  - Breast cancer recurrent [Recovered/Resolved]
  - Renal cancer [Unknown]
  - Death [Fatal]
